FAERS Safety Report 7286667-1 (Version None)
Quarter: 2011Q1

REPORT INFORMATION
  Report Type: 
  Country: None (occurrence: None)
  Receive Date: 20110210
  Receipt Date: 20110114
  Transmission Date: 20110831
  Serious: Yes (Other)
  Sender: FDA-Public Use
  Company Number: JP-PFIZER INC-2011002067

PATIENT
  Age: 69 Year
  Sex: Male

DRUGS (7)
  1. TIMIPERONE [Suspect]
     Indication: SCHIZOPHRENIA
  2. SULTOPRIDE [Suspect]
     Indication: SCHIZOPHRENIA
  3. FLUNITRAZEPAM [Suspect]
     Indication: SCHIZOPHRENIA
  4. PAKISONAL [Suspect]
     Dosage: UNKNOWN
  5. PROMETHAZINE [Suspect]
     Indication: SCHIZOPHRENIA
  6. DIAZEPAM [Suspect]
     Indication: SCHIZOPHRENIA
  7. RISPERDONE [Suspect]
     Indication: SCHIZOPHRENIA

REACTIONS (1)
  - NEUROLEPTIC MALIGNANT SYNDROME [None]
